FAERS Safety Report 7607971-0 (Version None)
Quarter: 2011Q3

REPORT INFORMATION
  Report Type: 
  Country: None (occurrence: None)
  Receive Date: 20110714
  Receipt Date: 20110706
  Transmission Date: 20111222
  Serious: No
  Sender: FDA-Public Use
  Company Number: US-PFIZER INC-2011155814

PATIENT
  Sex: Female

DRUGS (6)
  1. CALCIUM [Concomitant]
     Indication: SUPPLEMENTATION THERAPY
     Dosage: UNK, 2X/DAY
  2. VERAPAMIL [Concomitant]
     Indication: CARDIAC DISORDER
     Dosage: 180 MG, UNK
     Route: 048
     Dates: start: 20110210
  3. AMOXICILLIN [Concomitant]
     Indication: DENTAL CARE
     Dosage: UNK, AS NEEDED
     Route: 048
  4. AMLODIPINE BESYLATE [Suspect]
     Indication: HYPERTENSION
     Dosage: 2.5 MG, 1X/DAY
     Route: 048
     Dates: end: 20090408
  5. VITAMINS WITH MINERALS [Concomitant]
     Indication: VITAMIN SUPPLEMENTATION
     Dosage: UNK, 1X/DAY
     Route: 048
  6. BIOTIN [Concomitant]
     Dosage: 800 MG, DAILY
     Route: 048

REACTIONS (1)
  - MUSCLE SPASMS [None]
